FAERS Safety Report 6618568-3 (Version None)
Quarter: 2010Q1

REPORT INFORMATION
  Report Type: 
  Country: None (occurrence: None)
  Receive Date: 20100308
  Receipt Date: 20100302
  Transmission Date: 20100710
  Serious: Yes (Hospitalization, Disabling, Other)
  Sender: FDA-Public Use
  Company Number: US-MERCK-0902USA01601

PATIENT
  Age: 48 Year
  Sex: Female

DRUGS (6)
  1. FOSAMAX [Suspect]
     Indication: OSTEOPOROSIS
     Route: 048
     Dates: start: 20010101, end: 20070301
  2. FOSAMAX [Suspect]
     Indication: OSTEOPENIA
     Route: 048
     Dates: start: 20010101, end: 20070301
  3. NEXIUM [Concomitant]
     Indication: GASTROOESOPHAGEAL REFLUX DISEASE
     Route: 065
     Dates: start: 20010401
  4. AMBIEN CR [Concomitant]
     Indication: INSOMNIA
     Route: 065
     Dates: start: 19990801, end: 20070301
  5. PROPOXYPHENE HYDROCHLORIDE [Concomitant]
     Indication: OESOPHAGEAL SPASM
     Route: 065
     Dates: start: 19991101, end: 20070901
  6. LORAZEPAN (LORAZEPAM) [Concomitant]
     Indication: ANXIETY
     Route: 065
     Dates: start: 20000701

REACTIONS (24)
  - ANTINUCLEAR ANTIBODY POSITIVE [None]
  - ANXIETY [None]
  - ARTHROPATHY [None]
  - BACK DISORDER [None]
  - BARRETT'S OESOPHAGUS [None]
  - DENTAL CARIES [None]
  - DEPRESSION [None]
  - DERMATITIS CONTACT [None]
  - HYPERTENSION [None]
  - IMPAIRED HEALING [None]
  - INTERVERTEBRAL DISC PROTRUSION [None]
  - MENIERE'S DISEASE [None]
  - OSTEOMYELITIS [None]
  - OSTEONECROSIS [None]
  - PAIN IN JAW [None]
  - PALPITATIONS [None]
  - SEASONAL ALLERGY [None]
  - SPINAL DISORDER [None]
  - TOOTH ABSCESS [None]
  - TOOTH DISORDER [None]
  - TOOTH FRACTURE [None]
  - TOOTH INFECTION [None]
  - UPPER LIMB FRACTURE [None]
  - URINARY TRACT INFECTION [None]
